FAERS Safety Report 7884803-7 (Version None)
Quarter: 2011Q4

REPORT INFORMATION
  Report Type: 
  Country: None (occurrence: None)
  Receive Date: 20111102
  Receipt Date: 20111026
  Transmission Date: 20120403
  Serious: Yes (Death, Hospitalization)
  Sender: FDA-Public Use
  Company Number: PHHY2011PT94372

PATIENT
  Age: 68 Year
  Sex: Male

DRUGS (6)
  1. MYCOPHENOLATE MOFETIL [Suspect]
     Indication: RENAL TRANSPLANT
     Dosage: 1000 MG, BID
  2. DACLIZUMAB [Suspect]
     Dosage: UNK UKN, UNK
  3. PREDNISOLONE [Suspect]
     Dosage: 10 MG, QD
  4. CYCLOSPORINE [Suspect]
     Dosage: 50 MG, BID
  5. PREDNISOLONE [Suspect]
     Dosage: 20 MG, QD
  6. CYCLOSPORINE [Suspect]
     Indication: RENAL TRANSPLANT
     Dosage: 100 MG, BID

REACTIONS (12)
  - SEPSIS [None]
  - POST PROCEDURAL INFECTION [None]
  - RENAL FAILURE CHRONIC [None]
  - LEUKOPENIA [None]
  - COMPLICATIONS OF TRANSPLANTED KIDNEY [None]
  - CYTOMEGALOVIRUS INFECTION [None]
  - KIDNEY TRANSPLANT REJECTION [None]
  - CONVULSION [None]
  - CRYPTOCOCCOSIS [None]
  - ACUTE RESPIRATORY DISTRESS SYNDROME [None]
  - COMPUTERISED TOMOGRAM THORAX ABNORMAL [None]
  - CONFUSIONAL STATE [None]
